FAERS Safety Report 6714101-6 (Version None)
Quarter: 2010Q2

REPORT INFORMATION
  Report Type: 
  Country: None (occurrence: None)
  Receive Date: 20100506
  Receipt Date: 20100427
  Transmission Date: 20101027
  Serious: Yes (Hospitalization)
  Sender: FDA-Public Use
  Company Number: AT-PFIZER INC-2010046782

PATIENT
  Sex: Female

DRUGS (11)
  1. SORTIS [Suspect]
     Indication: HYPERTENSION
     Dosage: 20 MG, 1X/DAY
     Route: 048
  2. SORTIS [Suspect]
     Dosage: 40 MG, 1X/DAY
     Dates: start: 20100101
  3. LEVOTHYROXINE SODIUM [Concomitant]
     Dosage: 75 MG, UNK
  4. SELOKEN [Concomitant]
     Dosage: 95 MG, 1X/DAY
  5. SELOKEN [Concomitant]
     Dosage: 142.5 MG, DAILY
  6. COSAAR PLUS [Concomitant]
     Dosage: UNK
  7. ASPIRIN [Concomitant]
     Dosage: 100 MG, 1X/DAY
  8. PANTOLOC ^NYCOMED^ [Concomitant]
     Dosage: 40 MG, 1X/DAY
     Dates: start: 20100101
  9. PLAVIX [Concomitant]
     Dosage: 75 MG, 1X/DAY
     Dates: start: 20100101
  10. CIPRALEX [Concomitant]
     Dosage: 10 MG, 1X/DAY
     Dates: start: 20100101
  11. XANOR [Concomitant]
     Dosage: 0.5 MG, AS NEEDED
     Dates: start: 20100101

REACTIONS (3)
  - ABDOMINAL DISCOMFORT [None]
  - GASTROOESOPHAGEAL REFLUX DISEASE [None]
  - MYOCARDIAL INFARCTION [None]
